FAERS Safety Report 26146320 (Version 1)
Quarter: 2025Q4

REPORT INFORMATION
  Report Type: Spontaneous
  Country: EU (occurrence: EU)
  Receive Date: 20251211
  Receipt Date: 20251211
  Transmission Date: 20260117
  Serious: Yes (Other)
  Sender: MYLAN
  Company Number: EU-MYLANLABS-2025M1105848

PATIENT
  Age: 26 Year
  Sex: Male

DRUGS (7)
  1. LENALIDOMIDE [Suspect]
     Active Substance: LENALIDOMIDE
     Indication: Diffuse large B-cell lymphoma stage I
     Dosage: 6 CYCLES ADMINISTERED IN TOTAL R2-CHOP THERAPY
  2. METHOTREXATE [Suspect]
     Active Substance: METHOTREXATE
     Indication: Prophylaxis
     Dosage: 2 CYCLES ADMINISTERED (HIGH DOSE
  3. VINCRISTINE [Suspect]
     Active Substance: VINCRISTINE
     Indication: Diffuse large B-cell lymphoma stage I
     Dosage: 6 CYCLES ADMINISTERED IN TOTAL R2-CHOP THERAPY
  4. PREDNISONE [Suspect]
     Active Substance: PREDNISONE
     Indication: Diffuse large B-cell lymphoma stage I
     Dosage: 6 CYCLES ADMINISTERED IN TOTAL R2-CHOP THERAPY
  5. RITUXIMAB [Suspect]
     Active Substance: RITUXIMAB
     Indication: Diffuse large B-cell lymphoma stage I
     Dosage: 6 CYCLES ADMINISTERED IN TOTAL R2-CHOP THERAPY
  6. CYCLOPHOSPHAMIDE [Suspect]
     Active Substance: CYCLOPHOSPHAMIDE
     Indication: Diffuse large B-cell lymphoma stage I
     Dosage: 6 CYCLES ADMINISTERED IN TOTAL R2-CHOP THERAPY
  7. DOXORUBICIN [Suspect]
     Active Substance: DOXORUBICIN
     Indication: Diffuse large B-cell lymphoma stage I
     Dosage: 6 CYCLES ADMINISTERED IN TOTAL R2-CHOP THERAPY

REACTIONS (1)
  - Disease recurrence [Unknown]
